FAERS Safety Report 13707202 (Version 1)
Quarter: 2017Q2

REPORT INFORMATION
  Report Type: Spontaneous
  Country: MX (occurrence: MX)
  Receive Date: 20170630
  Receipt Date: 20170630
  Transmission Date: 20170830
  Serious: Yes (Other)
  Sender: FDA-Public Use
  Company Number: MX-PFIZER INC-2017285156

PATIENT
  Sex: Female

DRUGS (2)
  1. SERMION [Suspect]
     Active Substance: NICERGOLINE
     Dosage: UNK
  2. NORVASC [Suspect]
     Active Substance: AMLODIPINE BESYLATE
     Dosage: UNK

REACTIONS (2)
  - Abasia [Not Recovered/Not Resolved]
  - Mobility decreased [Not Recovered/Not Resolved]
